FAERS Safety Report 23379288 (Version 2)
Quarter: 2025Q1

REPORT INFORMATION
  Report Type: Spontaneous
  Country: FR (occurrence: FR)
  Receive Date: 20240108
  Receipt Date: 20250322
  Transmission Date: 20250408
  Serious: Yes (Hospitalization, Other)
  Sender: TEVA
  Company Number: FR-TEVA-VS-3140439

PATIENT
  Age: 88 Year
  Sex: Female

DRUGS (5)
  1. METHYLPREDNISOLONE [Suspect]
     Active Substance: METHYLPREDNISOLONE
     Indication: Uveitis
     Route: 050
     Dates: start: 202110
  2. ATROPINE [Concomitant]
     Active Substance: ATROPINE
     Indication: Uveitis
     Route: 065
  3. PREDNISOLONE [Suspect]
     Active Substance: PREDNISOLONE
     Indication: Uveitis
     Dosage: PREDNISOLONE ACETATE
     Route: 065
  4. TIMOLOL [Concomitant]
     Active Substance: TIMOLOL
     Indication: Uveitis
     Route: 065
  5. BROLUCIZUMAB [Suspect]
     Active Substance: BROLUCIZUMAB
     Indication: Neovascular age-related macular degeneration
     Route: 050
     Dates: start: 202109

REACTIONS (4)
  - Uveitis [Recovering/Resolving]
  - Self-injurious ideation [Unknown]
  - Psychotic disorder [Unknown]
  - Vasculitis [Recovering/Resolving]

NARRATIVE: CASE EVENT DATE: 20211001
